FAERS Safety Report 17357471 (Version 1)
Quarter: 2020Q1

REPORT INFORMATION
  Report Type: Spontaneous
  Country: BR (occurrence: BR)
  Receive Date: 20200131
  Receipt Date: 20200131
  Transmission Date: 20200409
  Serious: Yes (Other)
  Sender: FDA-Public Use
  Company Number: BR-009507513-2001BRA007630

PATIENT
  Sex: Female
  Weight: 78 kg

DRUGS (8)
  1. TEGRETOL [Concomitant]
     Active Substance: CARBAMAZEPINE
     Indication: EPILEPSY
     Route: 048
  2. MIRTAZAPINE. [Suspect]
     Active Substance: MIRTAZAPINE
     Dosage: 0.25, 1 DOSAGE FORM, QD
     Route: 048
  3. URBANYL [Suspect]
     Active Substance: CLOBAZAM
     Indication: SEIZURE
     Dosage: IN THE MORNING AND AT NIGHT
     Route: 048
     Dates: start: 201306
  4. GARDENAL [Concomitant]
     Active Substance: PHENOBARBITAL
     Indication: EPILEPSY
     Dosage: ABOUT 35-YEARS-AGO
     Route: 048
  5. AMLODIPINE BESYLATE (+) TELMISARTAN [Concomitant]
     Active Substance: AMLODIPINE BESYLATE\TELMISARTAN
     Indication: HYPERTENSION
     Route: 048
     Dates: start: 2012
  6. VALSARTAN. [Concomitant]
     Active Substance: VALSARTAN
     Route: 048
     Dates: start: 2011
  7. MIRTAZAPINE. [Suspect]
     Active Substance: MIRTAZAPINE
     Indication: DEPRESSION
     Dosage: 0.5 DOSAGE FORM, QD
     Route: 048
     Dates: start: 201306
  8. OMEPRAZOLE. [Concomitant]
     Active Substance: OMEPRAZOLE
     Indication: GASTRITIS
     Route: 048
     Dates: start: 2008

REACTIONS (7)
  - Somnolence [Recovering/Resolving]
  - Gait disturbance [Recovering/Resolving]
  - Memory impairment [Unknown]
  - Seizure [Recovered/Resolved]
  - Insomnia [Not Recovered/Not Resolved]
  - Dizziness [Not Recovered/Not Resolved]
  - Adjustment disorder with depressed mood [Recovering/Resolving]

NARRATIVE: CASE EVENT DATE: 2013
